FAERS Safety Report 4437127-4 (Version None)
Quarter: 2004Q3

REPORT INFORMATION
  Report Type: 
  Country: None (occurrence: None)
  Receive Date: 20040830
  Receipt Date: 20040816
  Transmission Date: 20050211
  Serious: Yes (Hospitalization)
  Sender: FDA-Public Use
  Company Number: PHHO2004JP11533

PATIENT
  Age: 55 Year
  Sex: Male
  Weight: 68 kg

DRUGS (1)
  1. GLEEVEC [Suspect]
     Indication: CHRONIC MYELOID LEUKAEMIA
     Dosage: 300 MG, QD
     Route: 048
     Dates: start: 20030127

REACTIONS (6)
  - ASPARTATE AMINOTRANSFERASE INCREASED [None]
  - BILIARY TRACT INFECTION [None]
  - BLOOD BILIRUBIN INCREASED [None]
  - HICCUPS [None]
  - NAUSEA [None]
  - VOMITING [None]
